FAERS Safety Report 6169372-4 (Version None)
Quarter: 2009Q2

REPORT INFORMATION
  Report Type: 
  Country: None (occurrence: None)
  Receive Date: 20090424
  Receipt Date: 20090409
  Transmission Date: 20091009
  Serious: Yes (Other)
  Sender: FDA-Public Use
  Company Number: 2009S1003668

PATIENT
  Age: 80 Year
  Sex: Female
  Weight: 74 kg

DRUGS (2)
  1. OMEPRAZOLE [Suspect]
     Indication: DRUG USE FOR UNKNOWN INDICATION
     Dosage: 20 MG;ONCE;ORAL
     Route: 048
  2. ATACAND [Concomitant]

REACTIONS (4)
  - DYSPNOEA [None]
  - EAR PAIN [None]
  - OROPHARYNGEAL PAIN [None]
  - PRODUCT SUBSTITUTION ISSUE [None]
